FAERS Safety Report 8358780-9 (Version None)
Quarter: 2012Q2

REPORT INFORMATION
  Report Type: 
  Country: None (occurrence: None)
  Receive Date: 20120514
  Receipt Date: 20120502
  Transmission Date: 20120825
  Serious: Yes (Hospitalization)
  Sender: FDA-Public Use
  Company Number: US-ELI_LILLY_AND_COMPANY-US201111004696

PATIENT
  Sex: Female
  Weight: 45.45 kg

DRUGS (7)
  1. FORTEO [Suspect]
     Indication: OSTEOPOROSIS
     Dosage: 20 UG, QD
     Dates: start: 20111029
  2. SIMVASTATIN [Concomitant]
     Dosage: 20 MG, QD
  3. BENAZEPRIL HYDROCHLORIDE [Concomitant]
     Indication: HYPERTENSION
     Dosage: 20 MG, BID
  4. FORTEO [Suspect]
     Dosage: 20 UG, QD
     Dates: start: 20120301
  5. FORTEO [Suspect]
     Dosage: 20 UG, QD
     Dates: end: 20120209
  6. LOVAZA [Concomitant]
  7. VITAMIN D [Concomitant]

REACTIONS (7)
  - DEHYDRATION [None]
  - HYPERTENSION [None]
  - VASODILATATION [None]
  - INJECTION SITE ERYTHEMA [None]
  - FLUSHING [None]
  - ANGIOPATHY [None]
  - INJECTION SITE RASH [None]
